FAERS Safety Report 6932865-3 (Version None)
Quarter: 2010Q3

REPORT INFORMATION
  Report Type: 
  Country: None (occurrence: None)
  Receive Date: 20100819
  Receipt Date: 20100812
  Transmission Date: 20110219
  Serious: Yes (Other)
  Sender: FDA-Public Use
  Company Number: AU-WYE-G06444210

PATIENT
  Age: 62 Year
  Sex: Male

DRUGS (5)
  1. PRISTIQ [Suspect]
     Indication: DEPRESSION
     Dosage: 100MG DAILY
     Route: 048
     Dates: start: 20100713, end: 20100729
  2. PRISTIQ [Suspect]
     Indication: ANXIETY
  3. MOBIC [Concomitant]
     Indication: OSTEOARTHRITIS
     Dosage: 15MG DAILY
     Route: 048
  4. ACETAMINOPHEN W/ CODEINE [Concomitant]
     Indication: OSTEOARTHRITIS
     Dosage: 2 TABLETS WHEN REQUIRED (PRN)
     Route: 048
  5. ARTANE [Concomitant]
     Indication: MYALGIA
     Dosage: 5MG THREE TIMES DAILY (TDS)
     Route: 048

REACTIONS (1)
  - HALLUCINATION, VISUAL [None]
